FAERS Safety Report 7607653-5 (Version None)
Quarter: 2011Q3

REPORT INFORMATION
  Report Type: 
  Country: None (occurrence: None)
  Receive Date: 20110713
  Receipt Date: 20110510
  Transmission Date: 20111222
  Serious: Yes (Other)
  Sender: FDA-Public Use
  Company Number: PHHY2011AT42033

PATIENT
  Age: 47 Year
  Sex: Female

DRUGS (11)
  1. PREDNISOLONE [Concomitant]
     Dosage: 7.5 MG, QD
  2. COTRIBENE [Concomitant]
     Indication: PNEUMOCYSTIS JIROVECI PNEUMONIA
     Dosage: 3 X 1
  3. INSULIN NOVO [Concomitant]
     Indication: DIABETES MELLITUS
  4. VALCYTE [Concomitant]
     Indication: ANTIVIRAL PROPHYLAXIS
     Dosage: 450 MG / DAY
  5. HYDAL RETARD [Concomitant]
     Indication: PAIN
     Dosage: 2 MG, UNK
  6. CERTICAN [Concomitant]
     Indication: RENAL TRANSPLANT
     Dosage: 1.5 MG, DAY
  7. SANDIMMUNE [Suspect]
     Indication: RENAL TRANSPLANT
     Dosage: 250 MG, UNK
     Dates: start: 20100708
  8. PANTOPRAZOLE SODIUM [Concomitant]
     Indication: PROPHYLAXIS AGAINST GASTROINTESTINAL ULCER
     Dosage: 40 MG, UNK
  9. NITRAZEPAM [Concomitant]
     Indication: INSOMNIA
  10. INSUMAN BASAL [Concomitant]
     Indication: DIABETES MELLITUS
     Dosage: 3 X 12 IE
  11. MEXALEN [Concomitant]
     Indication: PAIN
     Dosage: 500 MG, UNK

REACTIONS (1)
  - METABOLIC ACIDOSIS [None]
